FAERS Safety Report 14547902 (Version 1)
Quarter: 2018Q1

REPORT INFORMATION
  Report Type: Spontaneous
  Country: US (occurrence: US)
  Receive Date: 20180219
  Receipt Date: 20180219
  Transmission Date: 20180509
  Serious: Yes (Hospitalization, Other)
  Sender: FDA-Public Use
  Company Number: US-GLAXOSMITHKLINE-US2018GSK025968

PATIENT
  Age: 35 Year
  Sex: Male

DRUGS (1)
  1. BREO ELLIPTA [Suspect]
     Active Substance: FLUTICASONE FUROATE\VILANTEROL TRIFENATATE
     Indication: ASTHMA
     Dosage: UNK
     Dates: start: 2017

REACTIONS (6)
  - Dyspnoea [Unknown]
  - Terminal state [Unknown]
  - Cough [Unknown]
  - Choking sensation [Unknown]
  - Drug dose omission [Unknown]
  - Decreased activity [Unknown]

NARRATIVE: CASE EVENT DATE: 201702
